FAERS Safety Report 7396646-1 (Version None)
Quarter: 2011Q2

REPORT INFORMATION
  Report Type: 
  Country: None (occurrence: None)
  Receive Date: 20110406
  Receipt Date: 20110330
  Transmission Date: 20111010
  Serious: Yes (Life-Threatening, Hospitalization)
  Sender: FDA-Public Use
  Company Number: PHHY2011FR26364

PATIENT
  Sex: Female

DRUGS (19)
  1. BI-PROFENID [Suspect]
     Indication: FIBROMYALGIA
     Dosage: TWICE DAILY
     Route: 048
     Dates: start: 20070801, end: 20110117
  2. PROZAC [Concomitant]
     Indication: BIPOLAR I DISORDER
  3. XYZAL [Concomitant]
  4. NEXIUM [Concomitant]
  5. SKENAN [Concomitant]
     Indication: FIBROMYALGIA
  6. LYRICA [Concomitant]
     Indication: BIPOLAR I DISORDER
  7. NOCTRAN [Concomitant]
     Indication: BIPOLAR I DISORDER
  8. DEPAKOTE [Concomitant]
     Indication: BIPOLAR I DISORDER
  9. RIVOTRIL [Concomitant]
     Indication: BIPOLAR I DISORDER
  10. TAREG [Suspect]
     Indication: HYPERTENSION
     Dosage: 80 MG, UNK
     Route: 048
     Dates: end: 20110117
  11. SINGULAIR [Concomitant]
     Indication: CHRONIC OBSTRUCTIVE PULMONARY DISEASE
  12. LEVOTHYROX [Concomitant]
     Indication: HYPOTHYROIDISM
  13. ACEPROMAZINE [Concomitant]
     Indication: BIPOLAR I DISORDER
  14. NOVOMIX [Concomitant]
     Indication: TYPE 2 DIABETES MELLITUS
  15. ATARAX [Concomitant]
     Indication: BIPOLAR I DISORDER
  16. ART 50 [Concomitant]
  17. LERCAN [Concomitant]
     Indication: HYPERTENSION
  18. ACTISKENAN [Concomitant]
     Indication: FIBROMYALGIA
  19. CLORAZEPATE DIPOTASSIUM [Concomitant]
     Indication: BIPOLAR I DISORDER

REACTIONS (11)
  - NAUSEA [None]
  - DEHYDRATION [None]
  - SOMNOLENCE [None]
  - RHABDOMYOLYSIS [None]
  - BLOOD CREATINE PHOSPHOKINASE INCREASED [None]
  - OLIGURIA [None]
  - RENAL FAILURE ACUTE [None]
  - BLOOD CREATININE INCREASED [None]
  - INFLUENZA [None]
  - DIARRHOEA [None]
  - VOMITING [None]
